FAERS Safety Report 9438453 (Version 3)
Quarter: 2014Q3

REPORT INFORMATION
  Report Type: Spontaneous
  Country: US (occurrence: US)
  Receive Date: 20130802
  Receipt Date: 20140721
  Transmission Date: 20150326
  Serious: Yes (Hospitalization, Other)
  Sender: FDA-Public Use
  Company Number: US-009507513-1307USA017083

PATIENT
  Sex: Female
  Weight: 72.56 kg

DRUGS (1)
  1. NUVARING [Suspect]
     Active Substance: ETHINYL ESTRADIOL\ETONOGESTREL
     Indication: CONTRACEPTION
     Dosage: UNK
     Route: 067
     Dates: start: 200403, end: 200406

REACTIONS (9)
  - Oedema peripheral [Unknown]
  - Chest pain [Unknown]
  - Back pain [Unknown]
  - Maternal exposure before pregnancy [Unknown]
  - Back pain [Unknown]
  - Coagulopathy [Unknown]
  - Acne [Not Recovered/Not Resolved]
  - Pulmonary embolism [Unknown]
  - Abortion [Unknown]

NARRATIVE: CASE EVENT DATE: 200406
